FAERS Safety Report 4892248-7 (Version None)
Quarter: 2006Q1

REPORT INFORMATION
  Report Type: 
  Country: None (occurrence: None)
  Receive Date: 20060123
  Receipt Date: 20060111
  Transmission Date: 20060701
  Serious: Yes (Other)
  Sender: FDA-Public Use
  Company Number: 2006006100

PATIENT
  Age: 50 Year
  Sex: Female

DRUGS (1)
  1. XALATAN [Suspect]
     Indication: ILL-DEFINED DISORDER
     Dosage: OPHTHALMIC
     Route: 047

REACTIONS (2)
  - HERPES SIMPLEX OPHTHALMIC [None]
  - UVEITIS [None]
